FAERS Safety Report 24350934 (Version 1)
Quarter: 2024Q3

REPORT INFORMATION
  Report Type: Spontaneous
  Country: CN (occurrence: CN)
  Receive Date: 20240923
  Receipt Date: 20240923
  Transmission Date: 20241016
  Serious: No
  Sender: ROCHE
  Company Number: CN-ROCHE-3532826

PATIENT
  Age: 74 Year
  Sex: Male

DRUGS (2)
  1. HERCEPTIN [Suspect]
     Active Substance: TRASTUZUMAB
     Indication: Gastrointestinal carcinoma
     Route: 065
     Dates: start: 20231101
  2. PERJETA [Suspect]
     Active Substance: PERTUZUMAB
     Indication: Gastrointestinal carcinoma
     Route: 065
     Dates: start: 20231101

REACTIONS (4)
  - Off label use [Unknown]
  - Diarrhoea [Unknown]
  - Platelet count decreased [Recovering/Resolving]
  - Nasopharyngitis [Recovering/Resolving]
